FAERS Safety Report 7719101-5 (Version None)
Quarter: 2011Q3

REPORT INFORMATION
  Report Type: 
  Country: None (occurrence: None)
  Receive Date: 20110830
  Receipt Date: 20110826
  Transmission Date: 20111222
  Serious: Yes (Other)
  Sender: FDA-Public Use
  Company Number: US-VERTEX PHARMACEUTICALS INC.-AE-2011-000869

PATIENT
  Sex: Female
  Weight: 47.67 kg

DRUGS (6)
  1. ASPIRIN [Concomitant]
     Route: 048
  2. REBETOL [Concomitant]
     Indication: HEPATITIS C
     Route: 048
     Dates: start: 20110803, end: 20110803
  3. ENALAPRIL MALEATE [Concomitant]
     Route: 048
     Dates: start: 20090101
  4. PEGINTRON ALPHA [Concomitant]
     Indication: HEPATITIS C
     Route: 058
     Dates: start: 20110803, end: 20110803
  5. INCIVEK [Suspect]
     Indication: HEPATITIS C
     Route: 048
     Dates: start: 20110803, end: 20110803
  6. ACTIGALL [Concomitant]
     Route: 048

REACTIONS (5)
  - HEADACHE [None]
  - DEHYDRATION [None]
  - VOMITING [None]
  - MIGRAINE [None]
  - RETCHING [None]
